FAERS Safety Report 19991295 (Version 1)
Quarter: 2021Q4

REPORT INFORMATION
  Report Type: Spontaneous
  Country: US (occurrence: US)
  Receive Date: 20211023
  Receipt Date: 20211023
  Transmission Date: 20220304
  Serious: Yes (Death, Hospitalization)
  Sender: FDA-Public Use
  Company Number: None

PATIENT
  Age: 50 Year
  Sex: Female

DRUGS (16)
  1. REVLIMID [Suspect]
     Active Substance: LENALIDOMIDE
     Indication: Plasma cell myeloma
     Route: 048
     Dates: start: 20170515, end: 20210917
  2. tranadol [Concomitant]
  3. NPH INSULIN [Concomitant]
     Active Substance: INSULIN BEEF
  4. ALBUTEROL [Concomitant]
     Active Substance: ALBUTEROL
  5. fluticasone-salmeterol [Concomitant]
  6. SINGULAIR [Concomitant]
     Active Substance: MONTELUKAST SODIUM
  7. CARVEDILOL [Concomitant]
     Active Substance: CARVEDILOL
  8. METOLAZONE [Concomitant]
     Active Substance: METOLAZONE
  9. CALCIUM CARBONATE [Concomitant]
     Active Substance: CALCIUM CARBONATE
  10. K-TAB [Concomitant]
     Active Substance: POTASSIUM CHLORIDE
  11. torsedmide [Concomitant]
  12. sevelamer carbonate; [Concomitant]
  13. LISINOPRIL [Concomitant]
     Active Substance: LISINOPRIL
  14. ATORVASTATIN [Concomitant]
     Active Substance: ATORVASTATIN
  15. NIFEDIPINE [Concomitant]
     Active Substance: NIFEDIPINE
  16. CLONIDINE [Concomitant]
     Active Substance: CLONIDINE

REACTIONS (3)
  - Peritonitis [None]
  - End stage renal disease [None]
  - Peritoneal dialysis [None]

NARRATIVE: CASE EVENT DATE: 20210918
